FAERS Safety Report 5466952-6 (Version None)
Quarter: 2007Q3

REPORT INFORMATION
  Report Type: 
  Country: None (occurrence: None)
  Receive Date: 20070921
  Receipt Date: 20070921
  Transmission Date: 20080115
  Serious: Yes (Other)
  Sender: FDA-Public Use
  Company Number: None

PATIENT
  Age: 75 Year
  Sex: Female
  Weight: 72.5755 kg

DRUGS (1)
  1. CHOLESTYRAMINE [Suspect]
     Indication: MALABSORPTION
     Dosage: ORALLY, 1/2 SCOOPFUL MIXED IN LIQUID AND DRINK DAILY
     Route: 048
     Dates: start: 20070701

REACTIONS (2)
  - GASTROINTESTINAL DISORDER [None]
  - PHARMACEUTICAL PRODUCT COMPLAINT [None]
